FAERS Safety Report 7766789-9 (Version None)
Quarter: 2011Q3

REPORT INFORMATION
  Report Type: 
  Country: None (occurrence: None)
  Receive Date: 20110922
  Receipt Date: 20110321
  Transmission Date: 20111222
  Serious: No
  Sender: FDA-Public Use
  Company Number: US-ASTRAZENECA-2009SE30828

PATIENT
  Age: 49 Year
  Sex: Female
  Weight: 59 kg

DRUGS (5)
  1. SEROQUEL [Suspect]
     Indication: BIPOLAR DISORDER
     Dosage: 50MG
     Route: 048
  2. SEROQUEL [Suspect]
     Route: 048
  3. SEROQUEL [Suspect]
     Route: 048
  4. PROTONIX [Concomitant]
  5. SEROQUEL [Suspect]
     Indication: INSOMNIA
     Dosage: 50MG
     Route: 048

REACTIONS (9)
  - FATIGUE [None]
  - DIZZINESS [None]
  - MUSCULAR WEAKNESS [None]
  - DRUG INEFFECTIVE FOR UNAPPROVED INDICATION [None]
  - NAUSEA [None]
  - TREMOR [None]
  - SOMNOLENCE [None]
  - DRY EYE [None]
  - WEIGHT INCREASED [None]
